FAERS Safety Report 5486331-5 (Version None)
Quarter: 2007Q4

REPORT INFORMATION
  Report Type: 
  Country: None (occurrence: None)
  Receive Date: 20071016
  Receipt Date: 20071005
  Transmission Date: 20080405
  Serious: Yes (Other)
  Sender: FDA-Public Use
  Company Number: GB-ASTRAZENECA-2007GB01992

PATIENT
  Age: 46 Year
  Sex: Male

DRUGS (2)
  1. SEROQUEL [Suspect]
     Route: 048
     Dates: start: 19970101
  2. DEPIXOL [Suspect]
     Indication: SCHIZOPHRENIA
     Route: 030
     Dates: start: 19970101

REACTIONS (1)
  - NEUTROPENIA [None]
